FAERS Safety Report 4470980-7 (Version None)
Quarter: 2004Q4

REPORT INFORMATION
  Report Type: 
  Country: None (occurrence: None)
  Receive Date: 20041011
  Receipt Date: 20040930
  Transmission Date: 20050328
  Serious: Yes (Hospitalization)
  Sender: FDA-Public Use
  Company Number: DE-ABBOTT-04P-062-0275976-00

PATIENT
  Sex: Male
  Weight: 85 kg

DRUGS (2)
  1. KLACID FORTE FILMTABLETTEN [Suspect]
     Indication: LARYNGOTRACHEITIS
     Route: 048
     Dates: start: 20040928, end: 20040928
  2. KLACID FORTE FILMTABLETTEN [Suspect]
     Route: 048
     Dates: start: 20040929, end: 20040929

REACTIONS (1)
  - CIRCULATORY COLLAPSE [None]
